FAERS Safety Report 4442073-6 (Version None)
Quarter: 2004Q3

REPORT INFORMATION
  Report Type: 
  Country: None (occurrence: None)
  Receive Date: 20040903
  Receipt Date: 20040629
  Transmission Date: 20050211
  Serious: No
  Sender: FDA-Public Use
  Company Number: 2004UW09137

PATIENT
  Age: 66 Year
  Sex: Male
  Weight: 84.369 kg

DRUGS (2)
  1. CRESTOR [Suspect]
     Indication: CORONARY ARTERY DISEASE
     Dosage: 10 MG QD PO
     Route: 048
     Dates: start: 20030827, end: 20030927
  2. CRESTOR [Suspect]
     Indication: HYPERLIPIDAEMIA
     Dosage: 10 MG QD PO
     Route: 048
     Dates: start: 20030827, end: 20030927

REACTIONS (1)
  - MYALGIA [None]
